FAERS Safety Report 12178905 (Version 1)
Quarter: 2016Q1

REPORT INFORMATION
  Report Type: Spontaneous
  Country: US (occurrence: None)
  Receive Date: 20160314
  Receipt Date: 20160314
  Transmission Date: 20160526
  Serious: Yes (Disabling)
  Sender: FDA-Public Use
  Company Number: None

PATIENT
  Age: 56 Year
  Sex: Male
  Weight: 136.08 kg

DRUGS (10)
  1. TRIAMT/HCTZ [Concomitant]
     Active Substance: HYDROCHLOROTHIAZIDE\TRIAMTERENE
  2. METOPROLOL. [Concomitant]
     Active Substance: METOPROLOL
  3. POTA CHLORIDE [Concomitant]
  4. CINNAMON. [Concomitant]
     Active Substance: CINNAMON
  5. ALLOPURINOL. [Concomitant]
     Active Substance: ALLOPURINOL
  6. FISH OIL [Concomitant]
     Active Substance: FISH OIL
  7. BAYER ASPIRIN [Concomitant]
     Active Substance: ASPIRIN
  8. PREDNISONE. [Concomitant]
     Active Substance: PREDNISONE
  9. PANTOPRAZOLE SODIUM 40MG LEGACY PHARMACEUTICAL PACKAGING [Suspect]
     Active Substance: PANTOPRAZOLE SODIUM
     Indication: GASTROOESOPHAGEAL REFLUX DISEASE
     Route: 048
     Dates: start: 20160215, end: 20160311
  10. HYDRALAZINE [Concomitant]
     Active Substance: HYDRALAZINE HYDROCHLORIDE

REACTIONS (1)
  - Dyspepsia [None]

NARRATIVE: CASE EVENT DATE: 20160312
